FAERS Safety Report 24798895 (Version 1)
Quarter: 2024Q4

REPORT INFORMATION
  Report Type: Spontaneous
  Country: US (occurrence: None)
  Receive Date: 20241231
  Receipt Date: 20241231
  Transmission Date: 20250115
  Serious: Yes (Hospitalization)
  Sender: Public
  Company Number: None

PATIENT
  Age: 49 Year
  Sex: Female

DRUGS (11)
  1. AMBRISENTAN [Suspect]
     Active Substance: AMBRISENTAN
     Indication: Pulmonary arterial hypertension
     Dosage: FREQUENCY : DAILY;?
     Route: 048
     Dates: start: 20210331
  2. HYDROXYCHLOR TAB [Concomitant]
  3. QUETIAPINE TAB [Concomitant]
  4. SPIRONOLACT TAB [Concomitant]
  5. TRAZODONE TAB [Concomitant]
  6. FUROSEMIDE TAB [Concomitant]
  7. ESOMEPRAZOLE MAGNESIUM [Concomitant]
     Active Substance: ESOMEPRAZOLE MAGNESIUM
  8. CEFDINIR [Concomitant]
     Active Substance: CEFDINIR
  9. DOXYCYCHYL HYC TAB [Concomitant]
  10. ONDANSETRON TAB [Concomitant]
  11. AZITHROMYCIN TAB [Concomitant]

REACTIONS (2)
  - Pneumonia [None]
  - Therapy interrupted [None]

NARRATIVE: CASE EVENT DATE: 20241220
